FAERS Safety Report 11114560 (Version 2)
Quarter: 2015Q2

REPORT INFORMATION
  Report Type: Report from Study
  Country: US (occurrence: US)
  Receive Date: 20150515
  Receipt Date: 20150525
  Transmission Date: 20150821
  Serious: No
  Sender: FDA-Public Use
  Company Number: US-AMGEN-USASL2015044959

PATIENT
  Age: 63 Year
  Sex: Female

DRUGS (1)
  1. ENBREL [Suspect]
     Active Substance: ETANERCEPT
     Indication: RHEUMATOID ARTHRITIS
     Dosage: 50 MG, QWK
     Route: 065
     Dates: start: 20150427

REACTIONS (9)
  - Insomnia [Not Recovered/Not Resolved]
  - Injection site erythema [Recovered/Resolved]
  - Dyspnoea [Not Recovered/Not Resolved]
  - Injection site rash [Not Recovered/Not Resolved]
  - Injection site haemorrhage [Recovering/Resolving]
  - Fatigue [Not Recovered/Not Resolved]
  - Injection site macule [Not Recovered/Not Resolved]
  - Injection site reaction [Recovering/Resolving]
  - Respiratory disorder [Not Recovered/Not Resolved]

NARRATIVE: CASE EVENT DATE: 2015
